FAERS Safety Report 8509937-5 (Version None)
Quarter: 2012Q3

REPORT INFORMATION
  Report Type: 
  Country: None (occurrence: None)
  Receive Date: 20120713
  Receipt Date: 20120711
  Transmission Date: 20120928
  Serious: Yes (Other)
  Sender: FDA-Public Use
  Company Number: GB-JNJFOC-20120702204

PATIENT

DRUGS (9)
  1. PREDNISOLONE [Suspect]
     Indication: ADULT T-CELL LYMPHOMA/LEUKAEMIA
     Dosage: ON DAYS 1-5 OF 21 DAY CYCLE
     Route: 048
  2. COTRIM [Concomitant]
     Indication: ANTIFUNGAL PROPHYLAXIS
     Dosage: 960 MG ORALLY TWICE DAILY THREE TIMES A WEEK OR 480 MG DAILY
     Route: 048
  3. ITRACONAZOLE [Concomitant]
     Indication: PROPHYLAXIS
     Route: 065
  4. ACYCLOVIR [Concomitant]
     Indication: PROPHYLAXIS
     Route: 065
  5. DOXORUBICIN HCL [Suspect]
     Indication: ADULT T-CELL LYMPHOMA/LEUKAEMIA
     Dosage: ON DAY 1 OF 21 DAY CYCLE
     Route: 042
  6. ZENAPAX [Suspect]
     Indication: ADULT T-CELL LYMPHOMA/LEUKAEMIA
     Dosage: ON DAYS 7 AND 14 FOR CYCLE 1 AND ONLY ON DAY 1 FOR SUBSEQUENT CYCLES 2-6 OF 21 DAY CYCLE
     Route: 042
  7. THIABENDAZOLE [Concomitant]
     Indication: STRONGYLOIDIASIS
     Dosage: (MAXIMUM 1.5 G) FOR 3 DAYS
     Route: 065
  8. VINCRISTINE [Suspect]
     Indication: ADULT T-CELL LYMPHOMA/LEUKAEMIA
     Dosage: (MAXIMUM 2 MG) ON DAY 1 OF 21 DAY CYCLE,
     Route: 042
  9. CYCLOPHOSPHAMIDE [Suspect]
     Indication: ADULT T-CELL LYMPHOMA/LEUKAEMIA
     Dosage: ON DAY 1 OF 21 DAY CYCLE CYCLE
     Route: 042

REACTIONS (1)
  - VIITH NERVE PARALYSIS [None]
